FAERS Safety Report 7793210-7 (Version None)
Quarter: 2011Q4

REPORT INFORMATION
  Report Type: 
  Country: None (occurrence: None)
  Receive Date: 20111003
  Receipt Date: 20110927
  Transmission Date: 20120403
  Serious: Yes (Life-Threatening, Hospitalization, Disabling)
  Sender: FDA-Public Use
  Company Number: HR-ELI_LILLY_AND_COMPANY-HR201106003031

PATIENT
  Sex: Female
  Weight: 127 kg

DRUGS (6)
  1. BYETTA [Suspect]
     Indication: DIABETES MELLITUS
     Dosage: 5 UG, BID
     Route: 058
     Dates: start: 20110504, end: 20110509
  2. NEBIVOLOL HCL [Concomitant]
     Indication: HYPERTENSION
     Dosage: 10 UG, QD
  3. OMEPRAZOLE [Concomitant]
     Indication: GASTRITIS
     Dosage: 20 MG, UNK
  4. CALCIUM CARBONATE + VITAMIN D [Concomitant]
     Indication: OSTEOPOROSIS
  5. FERROUS                            /00023505/ [Concomitant]
  6. LEVOTHYROXINE [Concomitant]
     Indication: HYPOTHYROIDISM
     Dosage: 125 MG, UNK

REACTIONS (6)
  - RENAL FAILURE ACUTE [None]
  - NAUSEA [None]
  - HEADACHE [None]
  - VOMITING [None]
  - DIARRHOEA [None]
  - DEHYDRATION [None]
